FAERS Safety Report 23347434 (Version 2)
Quarter: 2024Q1

REPORT INFORMATION
  Report Type: Spontaneous
  Country: IT (occurrence: IT)
  Receive Date: 20231228
  Receipt Date: 20240229
  Transmission Date: 20240410
  Serious: Yes (Other)
  Sender: FDA-Public Use
  Company Number: IT-SANDOZ-SDZ2023IT064648

PATIENT
  Age: 57 Year
  Sex: Female

DRUGS (18)
  1. CISPLATIN [Suspect]
     Active Substance: CISPLATIN
     Indication: Lung adenocarcinoma
     Dosage: 5 CYCLES
     Route: 065
     Dates: start: 2019
  2. CISPLATIN [Suspect]
     Active Substance: CISPLATIN
     Indication: NTRK gene fusion cancer
  3. CISPLATIN [Suspect]
     Active Substance: CISPLATIN
     Indication: Papillary thyroid cancer
  4. CISPLATIN [Suspect]
     Active Substance: CISPLATIN
     Indication: Metastases to lung
  5. CISPLATIN [Suspect]
     Active Substance: CISPLATIN
     Indication: Metastases to pleura
  6. PEMETREXED [Suspect]
     Active Substance: PEMETREXED
     Indication: NTRK gene fusion cancer
     Dosage: 5 CYCLES
     Route: 065
     Dates: start: 2019
  7. PEMETREXED [Suspect]
     Active Substance: PEMETREXED
     Indication: Papillary thyroid cancer
  8. PEMETREXED [Suspect]
     Active Substance: PEMETREXED
     Indication: Metastases to lung
  9. PEMETREXED [Suspect]
     Active Substance: PEMETREXED
     Indication: Metastases to pleura
  10. ATEZOLIZUMAB [Suspect]
     Active Substance: ATEZOLIZUMAB
     Indication: NTRK gene fusion cancer
     Dosage: UNK
     Route: 065
     Dates: start: 2020
  11. ATEZOLIZUMAB [Suspect]
     Active Substance: ATEZOLIZUMAB
     Indication: Papillary thyroid cancer
  12. ATEZOLIZUMAB [Suspect]
     Active Substance: ATEZOLIZUMAB
     Indication: Metastases to lung
  13. ATEZOLIZUMAB [Suspect]
     Active Substance: ATEZOLIZUMAB
     Indication: Metastases to pleura
  14. ENTRECTINIB [Suspect]
     Active Substance: ENTRECTINIB
     Indication: NTRK gene fusion cancer
     Dosage: 600 MILLIGRAM, QD
     Route: 048
     Dates: start: 202102
  15. ENTRECTINIB [Suspect]
     Active Substance: ENTRECTINIB
     Indication: Papillary thyroid cancer
     Dosage: 400 MILLIGRAM, QD
     Route: 048
     Dates: start: 2021
  16. ENTRECTINIB [Suspect]
     Active Substance: ENTRECTINIB
     Indication: Metastases to lung
  17. ENTRECTINIB [Suspect]
     Active Substance: ENTRECTINIB
     Indication: Metastases to pleura
  18. ATEZOLIZUMAB [Concomitant]
     Active Substance: ATEZOLIZUMAB
     Indication: Lung adenocarcinoma
     Dosage: UNK
     Route: 065

REACTIONS (9)
  - Disease progression [Unknown]
  - Papillary thyroid cancer [Unknown]
  - Neurotoxicity [Not Recovered/Not Resolved]
  - Drug ineffective [Unknown]
  - Asthenia [Unknown]
  - Dysgeusia [Not Recovered/Not Resolved]
  - Bone pain [Not Recovered/Not Resolved]
  - Myalgia [Not Recovered/Not Resolved]
  - Decreased appetite [Unknown]

NARRATIVE: CASE EVENT DATE: 20200101
